FAERS Safety Report 9657149 (Version 2)
Quarter: 2013Q4

REPORT INFORMATION
  Report Type: Report from Study
  Country: DE (occurrence: DE)
  Receive Date: 20131030
  Receipt Date: 20131030
  Transmission Date: 20140711
  Serious: Yes (Death)
  Sender: FDA-Public Use
  Company Number: DE-ROCHE-1218923

PATIENT
  Age: 53 Year
  Sex: Female
  Weight: 59 kg

DRUGS (9)
  1. RITUXIMAB [Suspect]
     Indication: B-CELL LYMPHOMA
     Route: 065
     Dates: start: 200910, end: 201003
  2. RITUXIMAB [Suspect]
     Route: 065
     Dates: start: 201105, end: 201110
  3. RITUXIMAB [Suspect]
     Route: 042
     Dates: start: 20120216, end: 201208
  4. RITUXIMAB [Suspect]
     Route: 042
  5. CYCLOPHOSPHAMIDE [Concomitant]
     Route: 065
     Dates: start: 200910, end: 201003
  6. DOXORUBICIN [Concomitant]
     Route: 065
     Dates: start: 200910, end: 201003
  7. VINCRISTINE [Concomitant]
     Route: 065
     Dates: start: 200910, end: 201003
  8. PREDNISONE [Concomitant]
     Route: 065
     Dates: start: 200910, end: 201003
  9. BENDAMUSTINE [Concomitant]
     Route: 065
     Dates: start: 201105, end: 201110

REACTIONS (8)
  - Pulmonary haemorrhage [Fatal]
  - Pneumonia [Fatal]
  - Shock [Fatal]
  - Acute respiratory failure [Fatal]
  - Aortic aneurysm [Fatal]
  - Malignant neoplasm progression [Fatal]
  - Leukopenia [Not Recovered/Not Resolved]
  - Neutropenia [Not Recovered/Not Resolved]
